FAERS Safety Report 13360370 (Version 2)
Quarter: 2017Q3

REPORT INFORMATION
  Report Type: Spontaneous
  Country: CD (occurrence: CD)
  Receive Date: 20170322
  Receipt Date: 20170929
  Transmission Date: 20171127
  Serious: Yes (Death)
  Sender: FDA-Public Use
  Company Number: CD-JNJFOC-20170317519

PATIENT
  Age: 30 Year
  Sex: Male

DRUGS (14)
  1. AMIKACIN [Concomitant]
     Active Substance: AMIKACIN
     Indication: TUBERCULOSIS
  2. VITAMIN B6 [Concomitant]
     Active Substance: PYRIDOXINE HYDROCHLORIDE
  3. LINEZOLID. [Concomitant]
     Active Substance: LINEZOLID
     Indication: TUBERCULOSIS
  4. TOTHEMA [Concomitant]
     Active Substance: COPPER GLUCONATE\FERROUS GLUCONATE\MANGANESE GLUCONATE
  5. ZYLORIC [Concomitant]
     Active Substance: ALLOPURINOL
  6. CLOFAZIMINE [Concomitant]
     Active Substance: CLOFAZIMINE
     Indication: TUBERCULOSIS
  7. BEDAQUILINE [Suspect]
     Active Substance: BEDAQUILINE
     Indication: TUBERCULOSIS
     Route: 048
     Dates: start: 20161213
  8. SEKROL [Concomitant]
  9. PHOLEPHAMINE [Concomitant]
  10. IMODIUM [Concomitant]
     Active Substance: LOPERAMIDE HYDROCHLORIDE
  11. PARA-AMINOSALICYLIC ACID [Concomitant]
     Active Substance: AMINOSALICYLIC ACID
     Indication: TUBERCULOSIS
  12. PYRAZINAMIDE. [Concomitant]
     Active Substance: PYRAZINAMIDE
     Indication: TUBERCULOSIS
  13. PARACETAMOL [Concomitant]
     Active Substance: ACETAMINOPHEN
  14. INH [Concomitant]
     Active Substance: ISONIAZID
     Indication: TUBERCULOSIS

REACTIONS (9)
  - Pulmonary embolism [Fatal]
  - Asthenia [Unknown]
  - Cerebrovascular accident [Fatal]
  - Diarrhoea [Unknown]
  - Chest pain [Unknown]
  - Rash [Unknown]
  - Dyspnoea [Unknown]
  - Electrolyte imbalance [Fatal]
  - Nausea [Unknown]
